FAERS Safety Report 8441022-3 (Version None)
Quarter: 2012Q2

REPORT INFORMATION
  Report Type: 
  Country: None (occurrence: None)
  Receive Date: 20120323
  Receipt Date: 20111017
  Transmission Date: 20120825
  Serious: Yes (Hospitalization)
  Sender: FDA-Public Use
  Company Number: 163-21880-11071868

PATIENT
  Age: 55 Year
  Sex: Female
  Weight: 65.7716 kg

DRUGS (5)
  1. REVLIMID [Suspect]
     Indication: MULTIPLE MYELOMA
     Dosage: 25 MG, 1 IN 1 D, PO; 15 MG DAILY X 21 DAYS, OFF 7 DAYS, PO
     Route: 048
     Dates: start: 20080601
  2. REVLIMID [Suspect]
     Indication: MULTIPLE MYELOMA
     Dosage: 25 MG, 1 IN 1 D, PO; 15 MG DAILY X 21 DAYS, OFF 7 DAYS, PO
     Route: 048
     Dates: start: 20100701, end: 20110627
  3. ZOMETA [Concomitant]
  4. COUMADIN [Concomitant]
  5. AMBIEN [Concomitant]

REACTIONS (2)
  - WHITE BLOOD CELL COUNT DECREASED [None]
  - PNEUMONIA [None]
